FAERS Safety Report 5740470-X (Version None)
Quarter: 2008Q2

REPORT INFORMATION
  Report Type: 
  Country: None (occurrence: None)
  Receive Date: 20080513
  Receipt Date: 20080428
  Transmission Date: 20081010
  Serious: Yes (Hospitalization)
  Sender: FDA-Public Use
  Company Number: 220004M08CAN

PATIENT
  Age: 11 Year
  Sex: Female
  Weight: 33.2 kg

DRUGS (4)
  1. SAIZEN [Suspect]
     Indication: GROWTH HORMONE DEFICIENCY
     Dosage: 1 MG, 6 IN 1 WEEKS, SUBCUTANEOUS
     Route: 058
     Dates: start: 20070904, end: 20080416
  2. LEVOTHYROXINE SODIUM [Concomitant]
  3. CALCIUM CARBONATE [Concomitant]
  4. ERGOCALCIFEROL [Concomitant]

REACTIONS (7)
  - ABDOMINAL PAIN [None]
  - MALIGNANT NEOPLASM OF SPINAL CORD [None]
  - METASTASIS [None]
  - OSTEOPENIA [None]
  - PARAESTHESIA [None]
  - SPINAL CORD COMPRESSION [None]
  - URINARY RETENTION [None]
